FAERS Safety Report 7265612-9 (Version None)
Quarter: 2011Q1

REPORT INFORMATION
  Report Type: 
  Country: None (occurrence: None)
  Receive Date: 20110131
  Receipt Date: 20110128
  Transmission Date: 20110831
  Serious: Yes (Other)
  Sender: FDA-Public Use
  Company Number: SE-BAYER-200937723GPV

PATIENT
  Sex: Female

DRUGS (1)
  1. YASMIN [Suspect]
     Indication: ORAL CONTRACEPTION
     Route: 048
     Dates: end: 20090915

REACTIONS (3)
  - HYPERTENSION [None]
  - RETINAL VASCULAR THROMBOSIS [None]
  - SUDDEN VISUAL LOSS [None]
